FAERS Safety Report 7944994-6 (Version None)
Quarter: 2011Q4

REPORT INFORMATION
  Report Type: 
  Country: None (occurrence: None)
  Receive Date: 20111129
  Receipt Date: 20111118
  Transmission Date: 20120403
  Serious: Yes (Other)
  Sender: FDA-Public Use
  Company Number: JP-ASTELLAS-2011JP008525

PATIENT
  Sex: Male

DRUGS (14)
  1. PREDNISOLONE [Suspect]
     Indication: RHEUMATOID ARTHRITIS
     Dosage: 3 MG, UNKNOWN/D
     Route: 048
  2. ORENCIA [Concomitant]
     Dosage: UNK
     Route: 041
     Dates: start: 20110816
  3. CELECOXIB [Concomitant]
     Route: 065
  4. MUCOSTA [Concomitant]
     Route: 065
  5. PREDNISOLONE [Suspect]
     Dosage: 7.5 MG, UID/QD
     Route: 048
     Dates: start: 20110323
  6. ARAVA [Concomitant]
     Dosage: UNK
     Route: 065
     Dates: start: 20110101, end: 20110101
  7. AMLODIPINE [Concomitant]
     Route: 065
  8. PROGRAF [Suspect]
     Indication: RHEUMATOID ARTHRITIS
     Dosage: UNK
     Route: 065
     Dates: start: 20110101, end: 20110101
  9. ORENCIA [Concomitant]
     Indication: RHEUMATOID ARTHRITIS
     Dosage: 500 MG, UNKNOWN/D
     Route: 041
     Dates: start: 20110222
  10. LOXONIN [Concomitant]
     Route: 065
  11. METHOTREXATE [Suspect]
     Indication: RHEUMATOID ARTHRITIS
     Dosage: 8 MG, WEEKLY
     Route: 065
  12. ORENCIA [Concomitant]
     Dosage: UNK
     Route: 041
     Dates: start: 20110726
  13. ISONIAZID [Concomitant]
     Route: 065
  14. ALLOPURINOL [Concomitant]
     Route: 065

REACTIONS (1)
  - PLEURISY [None]
